FAERS Safety Report 10236531 (Version 1)
Quarter: 2014Q2

REPORT INFORMATION
  Report Type: Report from Study
  Country: MX (occurrence: MX)
  Receive Date: 20140613
  Receipt Date: 20140613
  Transmission Date: 20141212
  Serious: Yes (Other)
  Sender: FDA-Public Use
  Company Number: PHHY2014MX073439

PATIENT
  Age: 80 Year
  Sex: Male

DRUGS (3)
  1. EXFORGE [Suspect]
     Indication: HYPERTENSION
     Dosage: 1 DF (160/5MG), DAILY
     Route: 048
  2. EXFORGE [Suspect]
     Dosage: 0.5 DF (160/5MG), DAILY
     Route: 048
  3. ANGIOTROFIN [Suspect]
     Indication: HYPERTENSION
     Dosage: 0.5 DF, QD (AT NIGHT)
     Route: 048

REACTIONS (5)
  - Prostatic specific antigen increased [Not Recovered/Not Resolved]
  - Blood triglycerides increased [Not Recovered/Not Resolved]
  - Blood uric acid increased [Not Recovered/Not Resolved]
  - Drug prescribing error [Not Recovered/Not Resolved]
  - Wrong technique in drug usage process [Not Recovered/Not Resolved]
